FAERS Safety Report 9377665 (Version 3)
Quarter: 2013Q3

REPORT INFORMATION
  Report Type: Spontaneous
  Country: FR (occurrence: None)
  Receive Date: 20130625
  Receipt Date: 20130917
  Transmission Date: 20140515
  Serious: Yes (Other)
  Sender: FDA-Public Use
  Company Number: 2013P1010116

PATIENT
  Age: 69 Year
  Sex: Female

DRUGS (3)
  1. PLAQUENIL [Suspect]
     Route: 048
     Dates: end: 20130513
  2. LEVOTHYROXINE SODIUM [Suspect]
     Route: 048
  3. TAREG (VALSARTAN) [Concomitant]

REACTIONS (2)
  - Atrioventricular block [None]
  - Syncope [None]
